FAERS Safety Report 6161799-X (Version None)
Quarter: 2009Q2

REPORT INFORMATION
  Report Type: 
  Country: None (occurrence: None)
  Receive Date: 20090421
  Receipt Date: 20090416
  Transmission Date: 20091009
  Serious: Yes (Death, Hospitalization)
  Sender: FDA-Public Use
  Company Number: CA-ROCHE-627961

PATIENT
  Sex: Male

DRUGS (1)
  1. CAPECITABINE [Suspect]
     Route: 042
     Dates: start: 20090106

REACTIONS (1)
  - HOSPITALISATION [None]
